FAERS Safety Report 13477108 (Version 5)
Quarter: 2018Q1

REPORT INFORMATION
  Report Type: Spontaneous
  Country: DE (occurrence: DE)
  Receive Date: 20170425
  Receipt Date: 20180215
  Transmission Date: 20180508
  Serious: Yes (Death, Life-Threatening, Hospitalization, Other)
  Sender: FDA-Public Use
  Company Number: DE-PFIZER INC-2017173965

PATIENT
  Age: 60 Year
  Sex: Male
  Weight: 87 kg

DRUGS (5)
  1. RAMIPRIL. [Concomitant]
     Active Substance: RAMIPRIL
     Dosage: 10 MG, UNK
     Route: 048
  2. AZITHROMYCIN ANHYDROUS. [Suspect]
     Active Substance: AZITHROMYCIN ANHYDROUS
     Indication: TRACHEAL OBSTRUCTION
     Dosage: 500 MG, DAILY
     Route: 048
     Dates: start: 20170223, end: 20170224
  3. AMLODIPIN [Concomitant]
     Active Substance: AMLODIPINE BESYLATE
     Dosage: 5 MG, DAILY, LONG-TERM THERAPY
     Route: 048
  4. NOVALGIN (METAMIZOLE SODIUM) [Concomitant]
     Active Substance: METAMIZOLE SODIUM
     Dosage: UNK
     Dates: start: 201702
  5. AZITHROMYCIN ANHYDROUS. [Suspect]
     Active Substance: AZITHROMYCIN ANHYDROUS
     Indication: PYREXIA

REACTIONS (8)
  - Pseudomembranous colitis [Fatal]
  - Vomiting [Unknown]
  - Multiple organ dysfunction syndrome [Fatal]
  - Diarrhoea [Unknown]
  - Septic shock [Fatal]
  - C-reactive protein increased [Unknown]
  - Sepsis [Fatal]
  - Cardiovascular disorder [Unknown]

NARRATIVE: CASE EVENT DATE: 20170224
